FAERS Safety Report 20970980 (Version 4)
Quarter: 2023Q4

REPORT INFORMATION
  Report Type: Spontaneous
  Country: US (occurrence: US)
  Receive Date: 20220616
  Receipt Date: 20231130
  Transmission Date: 20240110
  Serious: No
  Sender: FDA-Public Use
  Company Number: US-SA-SAC20220613000438

PATIENT
  Age: 9 Year
  Sex: Female

DRUGS (7)
  1. DUPIXENT [Suspect]
     Active Substance: DUPILUMAB
     Indication: Asthma
     Dosage: 200 MG, QOW
     Route: 058
     Dates: start: 20220111
  2. NUCALA [Concomitant]
     Active Substance: MEPOLIZUMAB
  3. ADVAIR HFA [Concomitant]
     Active Substance: FLUTICASONE PROPIONATE\SALMETEROL XINAFOATE
  4. ALBUTEROL [Concomitant]
     Active Substance: ALBUTEROL
  5. IPRATROPIUM [Concomitant]
     Active Substance: IPRATROPIUM
  6. PREDNISONE [Concomitant]
     Active Substance: PREDNISONE
  7. CARBINOXAMINE [CARBINOXAMINE MALEATE] [Concomitant]

REACTIONS (2)
  - Impaired quality of life [Unknown]
  - Asthma [Unknown]
